FAERS Safety Report 4273848-4 (Version None)
Quarter: 2004Q1

REPORT INFORMATION
  Report Type: 
  Country: None (occurrence: None)
  Receive Date: 20040114
  Receipt Date: 20031231
  Transmission Date: 20041129
  Serious: Yes (Hospitalization)
  Sender: FDA-Public Use
  Company Number: B01200302038

PATIENT
  Age: 62 Year
  Sex: Male
  Weight: 95 kg

DRUGS (8)
  1. CISPLATIN [Suspect]
     Indication: CARCINOMA
     Dosage: 100 MG/M2 OTEHR - INTRAVENOUS NOS
     Route: 042
     Dates: start: 20030811, end: 20030811
  2. ONDANSETRON [Concomitant]
  3. DEXAMETHASONE [Concomitant]
  4. METOCLOPRAMIDE [Concomitant]
  5. COLOXYL WITH SENNA [Concomitant]
  6. ALLOPURINOL [Concomitant]
  7. PHENYTOIN SODIUM [Concomitant]
  8. MORPHINE [Concomitant]

REACTIONS (10)
  - DYSPHAGIA [None]
  - DYSPHONIA [None]
  - DYSPNOEA [None]
  - HEADACHE [None]
  - INFECTION [None]
  - OBSTRUCTIVE AIRWAYS DISORDER [None]
  - RESPIRATORY DISTRESS [None]
  - STRIDOR [None]
  - SWELLING [None]
  - VOMITING [None]
